FAERS Safety Report 7173034-4 (Version None)
Quarter: 2010Q4

REPORT INFORMATION
  Report Type: 
  Country: None (occurrence: None)
  Receive Date: 20101219
  Receipt Date: 20100218
  Transmission Date: 20110411
  Serious: Yes (Hospitalization, Other)
  Sender: FDA-Public Use
  Company Number: US-AMGEN-KDL393860

PATIENT

DRUGS (2)
  1. ENBREL [Suspect]
     Indication: RHEUMATOID ARTHRITIS
     Dosage: 50 MG, QWK
     Route: 058
     Dates: start: 19991101, end: 20020101
  2. SULFASALAZINE [Concomitant]
     Dosage: UNK UNK, UNK

REACTIONS (5)
  - INFLAMMATION [None]
  - MOBILITY DECREASED [None]
  - SINUS DISORDER [None]
  - SINUSITIS [None]
  - STAPHYLOCOCCAL INFECTION [None]
